FAERS Safety Report 20544030 (Version 1)
Quarter: 2022Q1

REPORT INFORMATION
  Report Type: Spontaneous
  Country: US (occurrence: US)
  Receive Date: 20220303
  Receipt Date: 20220303
  Transmission Date: 20220423
  Serious: Yes (Other)
  Sender: FDA-Public Use
  Company Number: US-35507-2022-02410

PATIENT
  Age: 59 Year
  Sex: Male

DRUGS (3)
  1. LEVETIRACETAM [Suspect]
     Active Substance: LEVETIRACETAM
     Indication: Temporal lobe epilepsy
     Dosage: 1000 MG, BID
     Route: 065
     Dates: start: 2013, end: 2015
  2. LEVETIRACETAM [Suspect]
     Active Substance: LEVETIRACETAM
     Dosage: DOSE INCREASED TO 1500 MG, BID
     Route: 065
     Dates: start: 2015
  3. PHENYTOIN SODIUM [Suspect]
     Active Substance: PHENYTOIN SODIUM
     Indication: Temporal lobe epilepsy
     Dosage: UNK
     Route: 065

REACTIONS (4)
  - Nervous system disorder [Unknown]
  - Hypometabolism [Unknown]
  - Mood altered [Unknown]
  - Condition aggravated [Unknown]
